FAERS Safety Report 14757392 (Version 1)
Quarter: 2018Q2

REPORT INFORMATION
  Report Type: Spontaneous
  Country: US (occurrence: US)
  Receive Date: 20180409
  Receipt Date: 20180409
  Transmission Date: 20180711
  Serious: Yes (Other)
  Sender: FDA-Public Use
  Company Number: None

PATIENT
  Age: 8 Year
  Sex: Male
  Weight: 20.7 kg

DRUGS (3)
  1. LANTUS [Suspect]
     Active Substance: INSULIN GLARGINE
     Indication: DEVELOPMENTAL DELAY
     Dosage: 1 4 UNITS;UNDER SKIN, INTO FAT?
     Dates: start: 20160401, end: 20180409
  2. NOVOLOG [Concomitant]
     Active Substance: INSULIN ASPART
  3. KIDS CHEWABLE VITAMIN [Concomitant]

REACTIONS (2)
  - Enuresis [None]
  - Underweight [None]

NARRATIVE: CASE EVENT DATE: 20180205
